FAERS Safety Report 9541072 (Version 3)
Quarter: 2013Q4

REPORT INFORMATION
  Report Type: Spontaneous
  Country: NO (occurrence: NO)
  Receive Date: 20130923
  Receipt Date: 20131001
  Transmission Date: 20140711
  Serious: No
  Sender: FDA-Public Use
  Company Number: NO-009507513-1208NOR002046

PATIENT
  Age: 73 Year
  Sex: Female

DRUGS (7)
  1. DIPROSALIC [Suspect]
     Indication: PSORIASIS
     Dosage: UNK UNK, QD
     Route: 061
     Dates: start: 20120510, end: 20120514
  2. DIPROSALIC [Interacting]
     Dosage: ONCE DAILY
     Dates: start: 20120510, end: 20120514
  3. DAKTACORT [Interacting]
     Indication: ECZEMA
     Dosage: 2 DF, QD
     Route: 061
     Dates: start: 20120430, end: 20120516
  4. DAKTACORT [Interacting]
     Dates: start: 20120430, end: 20120516
  5. LOCOID [Interacting]
     Indication: PSORIASIS
     Dosage: UNK, QD
     Route: 061
     Dates: start: 20120510, end: 20120514
  6. LOCOID [Interacting]
     Dosage: ONCE DAILY
     Dates: start: 20120510, end: 20120514
  7. MAREVAN [Interacting]
     Dosage: UNK

REACTIONS (1)
  - International normalised ratio increased [Recovering/Resolving]
